FAERS Safety Report 9700504 (Version 3)
Quarter: 2013Q4

REPORT INFORMATION
  Report Type: Spontaneous
  Country: US (occurrence: US)
  Receive Date: 20131121
  Receipt Date: 20131211
  Transmission Date: 20140711
  Serious: No
  Sender: FDA-Public Use
  Company Number: US-PFIZER INC-2013328544

PATIENT
  Age: 81 Year
  Sex: Female
  Weight: 68.93 kg

DRUGS (8)
  1. ADVIL [Suspect]
     Indication: PAIN
     Dosage: UNK, ONCE A DAY
     Route: 048
     Dates: start: 20131113, end: 20131115
  2. LYRICA [Concomitant]
     Indication: NEURALGIA
     Dosage: UNK
  3. LYRICA [Concomitant]
     Indication: DIABETIC NEUROPATHY
  4. EVISTA [Concomitant]
     Dosage: UNK
  5. SYNTHROID [Concomitant]
     Indication: THYROID DISORDER
     Dosage: UNK
  6. ATORVASTATIN [Concomitant]
     Indication: BLOOD CHOLESTEROL INCREASED
     Dosage: UNK
  7. LOSARTAN [Concomitant]
     Indication: HYPERTENSION
     Dosage: UNK
  8. HYDROCHLOROTHIAZIDE [Concomitant]
     Indication: HYPERTENSION
     Dosage: UNK

REACTIONS (3)
  - Foreign body [Unknown]
  - Dyspepsia [Unknown]
  - Malaise [Unknown]
